FAERS Safety Report 8201732-X (Version None)
Quarter: 2012Q1

REPORT INFORMATION
  Report Type: 
  Country: None (occurrence: None)
  Receive Date: 20120312
  Receipt Date: 20120307
  Transmission Date: 20120608
  Serious: Yes (Hospitalization)
  Sender: FDA-Public Use
  Company Number: US-GLAXOSMITHKLINE-A0969226A

PATIENT
  Age: 59 Year
  Sex: Male
  Weight: 106.2 kg

DRUGS (12)
  1. METHYLPREDNISOLONE [Suspect]
     Dosage: 2150MG WEEKLY
     Dates: start: 20120216
  2. OFATUMUMAB [Suspect]
     Indication: CHRONIC LYMPHOCYTIC LEUKAEMIA
     Dosage: 2000MG WEEKLY
     Dates: start: 20120216
  3. ACYCLOVIR [Concomitant]
     Dosage: 400MG TWICE PER DAY
     Route: 048
  4. DOXYCYCLINE [Concomitant]
     Dosage: 100MG PER DAY
     Route: 048
  5. DIPHENHYDRAMINE HCL [Concomitant]
     Dosage: 50MG AS REQUIRED
     Route: 048
  6. ACETAMINOPHEN [Concomitant]
     Dosage: 650MG AS REQUIRED
     Route: 048
  7. ATOVAQUONE [Concomitant]
     Dosage: 750MG PER DAY
     Route: 048
  8. FLUCONAZOLE [Concomitant]
     Route: 048
  9. CITALOPRAM [Concomitant]
     Dosage: 40MG PER DAY
     Route: 048
  10. FEXOFENADINE [Concomitant]
     Dosage: 1TAB PER DAY
     Route: 048
  11. BACTRIM DS [Concomitant]
     Indication: CELLULITIS
     Dosage: 1TAB PER DAY
     Route: 048
     Dates: start: 20120116
  12. FLUTICASONE PROPIONATE [Concomitant]
     Dosage: 2SPR PER DAY
     Route: 055

REACTIONS (1)
  - FEBRILE NEUTROPENIA [None]
